FAERS Safety Report 8022351-4 (Version None)
Quarter: 2012Q1

REPORT INFORMATION
  Report Type: 
  Country: None (occurrence: None)
  Receive Date: 20120104
  Receipt Date: 20111125
  Transmission Date: 20120608
  Serious: Yes (Other)
  Sender: FDA-Public Use
  Company Number: MX-SANOFI-AVENTIS-2011SA077887

PATIENT
  Age: 30 Year
  Sex: Female
  Weight: 55 kg

DRUGS (6)
  1. HYDROXYCHLOROQUINE SULFATE [Suspect]
     Route: 048
     Dates: start: 20050101
  2. METICORTEN [Concomitant]
     Route: 048
     Dates: start: 20050101
  3. FOLIC ACID [Concomitant]
     Indication: VITAMIN SUPPLEMENTATION
     Route: 048
     Dates: start: 20110501
  4. MATERNA [Concomitant]
     Indication: VITAMIN SUPPLEMENTATION
     Route: 048
     Dates: start: 20110501
  5. ENOXAPARIN SODIUM [Suspect]
     Indication: THROMBOSIS PROPHYLAXIS
     Route: 058
     Dates: start: 20110501
  6. FERROUS SULFATE TAB [Concomitant]
     Indication: VITAMIN SUPPLEMENTATION
     Route: 048
     Dates: start: 20110501

REACTIONS (2)
  - URINARY TRACT INFECTION [None]
  - MATERNAL EXPOSURE DURING PREGNANCY [None]
